FAERS Safety Report 8908051 (Version 1)
Quarter: 2012Q4

REPORT INFORMATION
  Report Type: Report from Study
  Country: DE (occurrence: DE)
  Receive Date: 20121114
  Receipt Date: 20121114
  Transmission Date: 20130627
  Serious: Yes (Hospitalization)
  Sender: FDA-Public Use
  Company Number: DE-ABBOTT-12P-062-0942190-00

PATIENT
  Sex: Female

DRUGS (3)
  1. HUMIRA [Suspect]
     Indication: PSORIASIS
     Route: 058
     Dates: start: 20110202, end: 20120328
  2. PANTOZOL [Concomitant]
     Indication: GASTRIC DISORDER
     Route: 048
     Dates: start: 20120427
  3. PANTOZOL [Concomitant]
     Indication: PROPHYLAXIS

REACTIONS (8)
  - Hospitalisation [Unknown]
  - Hypoaesthesia [Unknown]
  - Gastric disorder [Unknown]
  - Psoriasis [Recovering/Resolving]
  - Arthralgia [Recovering/Resolving]
  - Paraesthesia [Unknown]
  - Urinary tract infection [Recovered/Resolved]
  - Borrelia infection [Unknown]
